FAERS Safety Report 25308269 (Version 2)
Quarter: 2025Q2

REPORT INFORMATION
  Report Type: Spontaneous
  Country: US (occurrence: US)
  Receive Date: 20250513
  Receipt Date: 20250513
  Transmission Date: 20250717
  Serious: No
  Sender: SANOFI AVENTIS
  Company Number: US-SANOFI-02503094

PATIENT
  Age: 81 Year
  Sex: Male

DRUGS (1)
  1. SOLIQUA 100/33 [Suspect]
     Active Substance: INSULIN GLARGINE\LIXISENATIDE
     Indication: Type 2 diabetes mellitus
     Dosage: 50 DF, QD
     Route: 058
     Dates: start: 2025

REACTIONS (3)
  - Device mechanical issue [Unknown]
  - Injection site pain [Unknown]
  - Injection site haemorrhage [Unknown]
